FAERS Safety Report 9491996 (Version 2)
Quarter: 2013Q4

REPORT INFORMATION
  Report Type: Spontaneous
  Country: IT (occurrence: IT)
  Receive Date: 20130830
  Receipt Date: 20131021
  Transmission Date: 20140711
  Serious: Yes (Hospitalization)
  Sender: FDA-Public Use
  Company Number: IT-SANOFI-AVENTIS-2013SA085857

PATIENT
  Age: 86 Year
  Sex: Male
  Weight: 80 kg

DRUGS (11)
  1. CLEXANE T [Suspect]
     Indication: PULMONARY EMBOLISM
     Route: 058
     Dates: start: 20130627, end: 20130703
  2. CLEXANE T [Suspect]
     Indication: PULMONARY EMBOLISM
     Route: 065
     Dates: start: 20130710
  3. THEOPHYLLINE [Concomitant]
  4. CITALOPRAM [Concomitant]
  5. CORDARONE [Concomitant]
     Dosage: STRENGTH: 200MG
  6. CONGESCOR [Concomitant]
     Dosage: STRENGTH: 1.25 MG
  7. ANTRA [Concomitant]
     Dosage: STRENGTH: 10MG
  8. DELTACORTENE [Concomitant]
     Dosage: STRENGTH: 25MG
  9. LASIX [Concomitant]
     Dosage: STRENGTH: 25 MG
  10. SPIRIVA [Concomitant]
     Dosage: 18 MCG CAPS FOR INHALER DEVICE
  11. PULMAXAN [Concomitant]
     Dosage: STRENGTH: 100MCG POWDER FOR INHALATION

REACTIONS (5)
  - Renal failure acute [Recovering/Resolving]
  - Blood creatinine increased [Recovering/Resolving]
  - Blood urea increased [Recovering/Resolving]
  - Subcutaneous haematoma [Recovering/Resolving]
  - Anaemia [Recovering/Resolving]
